FAERS Safety Report 7955470-9 (Version None)
Quarter: 2011Q4

REPORT INFORMATION
  Report Type: 
  Country: None (occurrence: None)
  Receive Date: 20111202
  Receipt Date: 20111122
  Transmission Date: 20120403
  Serious: Yes (Other)
  Sender: FDA-Public Use
  Company Number: CA-ROCHE-GNE299813

PATIENT
  Sex: Male
  Weight: 105.11 kg

DRUGS (5)
  1. XOLAIR [Suspect]
     Indication: ASTHMA
     Dosage: 375 MG, Q2W
     Route: 058
     Dates: start: 20100129
  2. VENTOLIN [Concomitant]
     Indication: PRODUCT USED FOR UNKNOWN INDICATION
  3. SINGULAIR [Concomitant]
     Indication: PRODUCT USED FOR UNKNOWN INDICATION
  4. XOLAIR [Suspect]
     Dosage: 375MG BIW
     Route: 058
     Dates: start: 20100414
  5. XOLAIR [Suspect]
     Dosage: 375 MG BIW
     Route: 058
     Dates: start: 20100317

REACTIONS (3)
  - LUNG INFECTION [None]
  - HEART RATE IRREGULAR [None]
  - HYPERTENSION [None]
